FAERS Safety Report 8248442-0 (Version None)
Quarter: 2012Q1

REPORT INFORMATION
  Report Type: 
  Country: None (occurrence: None)
  Receive Date: 20120330
  Receipt Date: 20120322
  Transmission Date: 20120608
  Serious: Yes (Hospitalization)
  Sender: FDA-Public Use
  Company Number: US-ELI_LILLY_AND_COMPANY-US201112007075

PATIENT
  Sex: Female

DRUGS (12)
  1. MULTI-VITAMIN [Concomitant]
  2. CRESTOR [Concomitant]
     Indication: BLOOD CHOLESTEROL ABNORMAL
     Dosage: 5 MG, UNK
     Dates: start: 20120101
  3. VITAMIN D [Concomitant]
  4. FORTEO [Suspect]
     Dosage: 20 UG, QD
     Route: 065
  5. FORTEO [Suspect]
     Dosage: 20 UG, QD
     Route: 065
  6. CO Q-10 [Concomitant]
     Dosage: 100 MG, UNK
  7. FORTEO [Suspect]
     Dosage: 20 UG, QD
     Route: 065
  8. FORTEO [Suspect]
     Indication: OSTEOPOROSIS
     Dosage: 20 UG, QD
     Route: 065
     Dates: start: 20111209
  9. AVAPRO [Concomitant]
     Dosage: 150 MG, UNK
  10. METOPROLOL SUCCINATE [Concomitant]
     Indication: HYPERTENSION
     Dosage: 100 MG, UNK
  11. CITRACAL [Concomitant]
  12. FOLIC ACID [Concomitant]

REACTIONS (13)
  - ARTHRALGIA [None]
  - MYALGIA [None]
  - TOOTH DISORDER [None]
  - INJECTION SITE ERYTHEMA [None]
  - DYSPNOEA [None]
  - FEELING ABNORMAL [None]
  - DIZZINESS [None]
  - NAUSEA [None]
  - DRUG DOSE OMISSION [None]
  - ANGINA PECTORIS [None]
  - ADVERSE DRUG REACTION [None]
  - HEART VALVE INCOMPETENCE [None]
  - HYPERSENSITIVITY [None]
